FAERS Safety Report 23853446 (Version 1)
Quarter: 2024Q2

REPORT INFORMATION
  Report Type: Report from Study
  Country: TR (occurrence: TR)
  Receive Date: 20240514
  Receipt Date: 20240514
  Transmission Date: 20240716
  Serious: Yes (Other)
  Sender: FDA-Public Use
  Company Number: TR-SUN PHARMACEUTICAL INDUSTRIES LTD-2024R1-445844

PATIENT
  Age: 24 Year
  Sex: Female

DRUGS (3)
  1. FLURBIPROFEN [Suspect]
     Active Substance: FLURBIPROFEN
     Indication: Product used for unknown indication
     Dosage: 100 MILLIGRAM, DAILY
     Route: 065
  2. ISOTRETINOIN [Suspect]
     Active Substance: ISOTRETINOIN
     Indication: Acne
     Dosage: 40 MILLIGRAM, DAILY
     Route: 048
  3. NORETHINDRONE [Suspect]
     Active Substance: NORETHINDRONE
     Indication: Product used for unknown indication
     Dosage: 15 MILLIGRAM, DAILY
     Route: 065

REACTIONS (2)
  - Abortion induced [Unknown]
  - Exposure during pregnancy [Unknown]
